FAERS Safety Report 18068278 (Version 3)
Quarter: 2021Q4

REPORT INFORMATION
  Report Type: Spontaneous
  Country: IT (occurrence: IT)
  Receive Date: 20200724
  Receipt Date: 20211012
  Transmission Date: 20220303
  Serious: Yes (Other)
  Sender: FDA-Public Use
  Company Number: IT-UCBSA-2020029163

PATIENT
  Age: 55 Year
  Sex: Male

DRUGS (5)
  1. LACOSAMIDE [Suspect]
     Active Substance: LACOSAMIDE
     Indication: Epilepsy
     Dosage: 200 MILLIGRAM
  2. LEVETIRACETAM [Suspect]
     Active Substance: LEVETIRACETAM
     Indication: Epilepsy
     Dosage: 3000 MILLIGRAM
  3. OXCARBAZEPINE [Suspect]
     Active Substance: OXCARBAZEPINE
     Indication: Epilepsy
     Dosage: 600 MILLIGRAM
  4. VALPROIC ACID [Suspect]
     Active Substance: VALPROIC ACID
     Indication: Epilepsy
     Dosage: 500 MILLIGRAM
  5. PERAMPANEL [Concomitant]
     Active Substance: PERAMPANEL
     Indication: Epilepsy
     Dosage: 4 MILLIGRAM/ DAY

REACTIONS (1)
  - Multiple-drug resistance [Unknown]
